FAERS Safety Report 13355400 (Version 2)
Quarter: 2017Q4

REPORT INFORMATION
  Report Type: Spontaneous
  Country: US (occurrence: US)
  Receive Date: 20170321
  Receipt Date: 20171006
  Transmission Date: 20180320
  Serious: No
  Sender: FDA-Public Use
  Company Number: US-LUNDBECK-DKLU2027006

PATIENT
  Sex: Male

DRUGS (2)
  1. MIDODRINE [Suspect]
     Active Substance: MIDODRINE
     Indication: PRODUCT USED FOR UNKNOWN INDICATION
     Route: 065
  2. NORTHERA [Suspect]
     Active Substance: DROXIDOPA
     Indication: PRODUCT USED FOR UNKNOWN INDICATION
     Dosage: SCHEDULE C (TITRATING)
     Route: 065
     Dates: start: 20170214

REACTIONS (4)
  - Therapeutic response shortened [Unknown]
  - Blood pressure decreased [Not Recovered/Not Resolved]
  - Blood pressure fluctuation [Unknown]
  - Headache [Unknown]
